FAERS Safety Report 6382741-2 (Version None)
Quarter: 2009Q3

REPORT INFORMATION
  Report Type: 
  Country: None (occurrence: None)
  Receive Date: 20090930
  Receipt Date: 20090922
  Transmission Date: 20100115
  Serious: Yes (Life-Threatening, Disabling)
  Sender: FDA-Public Use
  Company Number: US-MERCK-0909USA03595

PATIENT
  Sex: Male
  Weight: 90 kg

DRUGS (20)
  1. SINGULAIR [Suspect]
     Indication: ASTHMA
     Route: 048
     Dates: start: 20070612, end: 20090914
  2. SINGULAIR [Suspect]
     Indication: HYPERSENSITIVITY
     Route: 048
     Dates: start: 20070612, end: 20090914
  3. TYLENOL [Concomitant]
     Route: 065
     Dates: start: 20090417
  4. NASONEX [Concomitant]
     Dates: start: 20090417
  5. GABAPENTIN [Concomitant]
     Indication: PAIN
     Route: 065
     Dates: start: 20090417
  6. BROVANA [Concomitant]
     Route: 065
     Dates: start: 20090417
  7. PERCOCET [Concomitant]
     Indication: PAIN
     Route: 065
     Dates: start: 20090417
  8. OXYCONTIN [Concomitant]
     Indication: PAIN
     Route: 065
     Dates: start: 20090417
  9. POTASSIUM CHLORIDE [Concomitant]
     Route: 065
     Dates: start: 20090417
  10. AVANDAMET [Concomitant]
     Route: 065
     Dates: start: 20090417
  11. DILTIAZEM [Concomitant]
     Indication: CARDIAC DISORDER
     Route: 065
     Dates: start: 20090417
  12. DOXAZOSIN MESYLATE [Concomitant]
     Indication: CARDIAC DISORDER
     Route: 065
     Dates: start: 20090417
  13. FERROUS SULFATE [Concomitant]
     Route: 065
     Dates: start: 20090417
  14. OXYBUTYNIN [Concomitant]
     Indication: PROSTATIC DISORDER
     Route: 065
     Dates: start: 20090417
  15. FOLIC ACID [Concomitant]
     Route: 065
     Dates: start: 20090417
  16. FUROSEMIDE [Concomitant]
     Route: 065
     Dates: start: 20090417
  17. BENEFIBER [Concomitant]
     Route: 065
     Dates: start: 20090417
  18. OXYGEN [Concomitant]
     Route: 065
     Dates: start: 20090417
  19. PROAIR HFA [Concomitant]
     Dates: start: 20090417
  20. DIOVAN HCT [Concomitant]
     Route: 065
     Dates: start: 20090417

REACTIONS (4)
  - ANAEMIA [None]
  - ASTHENIA [None]
  - HAEMATOCHEZIA [None]
  - PAIN IN EXTREMITY [None]
